FAERS Safety Report 8165944-6 (Version None)
Quarter: 2012Q1

REPORT INFORMATION
  Report Type: 
  Country: None (occurrence: None)
  Receive Date: 20120227
  Receipt Date: 20111201
  Transmission Date: 20120608
  Serious: No
  Sender: FDA-Public Use
  Company Number: US-MYLANLABS-2011S1024558

PATIENT
  Age: 13 Year
  Sex: Male

DRUGS (2)
  1. AMNESTEEM [Suspect]
     Indication: ACNE
     Route: 048
     Dates: end: 20111117
  2. CLARAVIS [Suspect]
     Indication: ACNE
     Route: 048
     Dates: start: 20110629

REACTIONS (1)
  - MOOD ALTERED [None]
